FAERS Safety Report 25665695 (Version 2)
Quarter: 2025Q3

REPORT INFORMATION
  Report Type: Spontaneous
  Country: US (occurrence: US)
  Receive Date: 20250811
  Receipt Date: 20250814
  Transmission Date: 20251021
  Serious: Yes (Other)
  Sender: TEVA
  Company Number: US-TEVA-VS-3359274

PATIENT
  Sex: Female

DRUGS (1)
  1. ALBUTEROL SULFATE [Suspect]
     Active Substance: ALBUTEROL SULFATE
     Indication: Product used for unknown indication
     Route: 065

REACTIONS (16)
  - Pneumonia [Recovered/Resolved]
  - Tachycardia [Unknown]
  - Concussion [Unknown]
  - Gait disturbance [Unknown]
  - Cardiac flutter [Unknown]
  - Confusional state [Unknown]
  - Dizziness [Unknown]
  - Cardiac disorder [Unknown]
  - Headache [Unknown]
  - Dyspnoea [Unknown]
  - Product dose confusion [Unknown]
  - Lethargy [Unknown]
  - Memory impairment [Not Recovered/Not Resolved]
  - Asthenia [Unknown]
  - Eye operation [Unknown]
  - COVID-19 [Recovered/Resolved]

NARRATIVE: CASE EVENT DATE: 20240101
